FAERS Safety Report 21164924 (Version 1)
Quarter: 2022Q3

REPORT INFORMATION
  Report Type: Spontaneous
  Country: US (occurrence: US)
  Receive Date: 20220803
  Receipt Date: 20220803
  Transmission Date: 20221027
  Serious: Yes (Life-Threatening, Hospitalization, Other)
  Sender: FDA-Public Use
  Company Number: US-BRISTOL-MYERS SQUIBB COMPANY-2022-079444

PATIENT
  Age: 74 Year
  Sex: Female

DRUGS (15)
  1. POMALYST [Suspect]
     Active Substance: POMALIDOMIDE
     Indication: Plasma cell myeloma
     Dosage: DAILY
     Route: 048
     Dates: start: 20220619
  2. VENTOLIN HFA [Concomitant]
     Active Substance: ALBUTEROL SULFATE
     Indication: Product used for unknown indication
     Dosage: 108 (90 BASE) INHALA
     Route: 065
     Dates: start: 20220110
  3. URSODIOL [Concomitant]
     Active Substance: URSODIOL
     Indication: Product used for unknown indication
     Dosage: ORAL TABLET 500 MG .3 TIMES A DAY
     Route: 048
     Dates: start: 20220110
  4. SYNTHROID [Concomitant]
     Active Substance: LEVOTHYROXINE SODIUM
     Indication: Product used for unknown indication
     Dosage: ORAL TABLET 75 MCG DAILY
     Route: 048
     Dates: start: 20220110
  5. SPIRONOLACTONE RPG [Concomitant]
     Indication: Product used for unknown indication
     Dosage: ORAL TABLET 25 MG DAILY
     Route: 048
     Dates: start: 20220110
  6. PROMETHAZINE HYDROCHLORIDE [Concomitant]
     Active Substance: PROMETHAZINE HYDROCHLORIDE
     Indication: Product used for unknown indication
     Dosage: ORAL TABLET  25 MG
     Route: 048
     Dates: start: 20220110
  7. POMALYST [Concomitant]
     Active Substance: POMALIDOMIDE
     Indication: Product used for unknown indication
     Dosage: ORAL CAPSULE 2 MG
     Route: 048
     Dates: start: 20220306, end: 20220507
  8. POMALYST [Concomitant]
     Active Substance: POMALIDOMIDE
     Route: 048
     Dates: start: 20220507
  9. PERFOROMIST [Concomitant]
     Active Substance: FORMOTEROL FUMARATE DIHYDRATE
     Indication: Product used for unknown indication
     Dosage: 20 MCG/2ML INHALA
     Route: 065
     Dates: start: 20220110
  10. MICARDIS [Concomitant]
     Active Substance: TELMISARTAN
     Indication: Product used for unknown indication
     Dosage: ORAL TABLET 80 MG
     Route: 048
     Dates: start: 20220110
  11. FISH OIL [Concomitant]
     Active Substance: FISH OIL
     Indication: Product used for unknown indication
     Dosage: DAILY
     Route: 048
     Dates: start: 20220110
  12. DETROL [Concomitant]
     Active Substance: TOLTERODINE TARTRATE
     Indication: Product used for unknown indication
     Dosage: DAILY
     Route: 048
     Dates: start: 20220110
  13. LEUCOVORIN CALCIUM [Concomitant]
     Active Substance: LEUCOVORIN CALCIUM
     Indication: Product used for unknown indication
     Dosage: 1200 DAILY
     Route: 048
     Dates: start: 20220110
  14. UDB [BUDESONIDE] [Concomitant]
     Indication: Product used for unknown indication
     Dosage: 0.5 MG/2ML INHALA
     Route: 065
     Dates: start: 20220110
  15. BENTYL [Concomitant]
     Active Substance: DICYCLOMINE HYDROCHLORIDE
     Indication: Product used for unknown indication
     Route: 048
     Dates: start: 20220110

REACTIONS (5)
  - Chills [Recovered/Resolved]
  - Atrial fibrillation [Recovered/Resolved]
  - Tremor [Recovered/Resolved]
  - Cardiogenic shock [Recovered/Resolved]
  - Hepatic failure [Recovered/Resolved]

NARRATIVE: CASE EVENT DATE: 20220717
